FAERS Safety Report 14345072 (Version 5)
Quarter: 2025Q2

REPORT INFORMATION
  Report Type: Report from Study
  Country: CA (occurrence: CA)
  Receive Date: 20180103
  Receipt Date: 20250411
  Transmission Date: 20250717
  Serious: Yes (Hospitalization, Disabling, Other)
  Sender: ROCHE
  Company Number: CA-ROCHE-1717137

PATIENT
  Age: 58 Year
  Sex: Male
  Weight: 80.0 kg

DRUGS (11)
  1. ACTEMRA [Suspect]
     Active Substance: TOCILIZUMAB
     Indication: Rheumatoid arthritis
     Route: 058
     Dates: start: 20140205
  2. ACTEMRA [Suspect]
     Active Substance: TOCILIZUMAB
     Route: 058
     Dates: start: 20150506
  3. ACTEMRA [Suspect]
     Active Substance: TOCILIZUMAB
     Route: 058
     Dates: start: 201510, end: 2017
  4. RITUXAN [Suspect]
     Active Substance: RITUXIMAB
     Indication: Rheumatoid arthritis
     Route: 042
  5. SULINDAC [Concomitant]
     Active Substance: SULINDAC
     Route: 048
  6. PREDNISONE [Concomitant]
     Active Substance: PREDNISONE
     Route: 048
  7. PLAQUENIL [Concomitant]
     Active Substance: HYDROXYCHLOROQUINE SULFATE
     Route: 048
  8. METHOTREXATE [Concomitant]
     Active Substance: METHOTREXATE
     Route: 048
  9. METHOTREXATE [Concomitant]
     Active Substance: METHOTREXATE
     Route: 058
  10. AMOXICILLIN\CLAVULANATE POTASSIUM [Concomitant]
     Active Substance: AMOXICILLIN\CLAVULANATE POTASSIUM
     Dosage: 75-125 FOR 10 DAYS
     Route: 048
     Dates: start: 20160622
  11. GABAPENTIN [Concomitant]
     Active Substance: GABAPENTIN

REACTIONS (13)
  - Nasopharyngitis [Not Recovered/Not Resolved]
  - Diverticular perforation [Recovered/Resolved with Sequelae]
  - Procedural intestinal perforation [Unknown]
  - Abdominal pain [Unknown]
  - Abdominal abscess [Unknown]
  - Intestinal perforation [Unknown]
  - Vasculitis [Unknown]
  - Nephrolithiasis [Unknown]
  - Arthralgia [Unknown]
  - Rheumatoid arthritis [Unknown]
  - Joint swelling [Unknown]
  - Drug ineffective [Unknown]
  - Wound dehiscence [Unknown]

NARRATIVE: CASE EVENT DATE: 20160220
